FAERS Safety Report 15597576 (Version 1)
Quarter: 2018Q4

REPORT INFORMATION
  Report Type: Spontaneous
  Country: US (occurrence: US)
  Receive Date: 20181108
  Receipt Date: 20181108
  Transmission Date: 20190205
  Serious: No
  Sender: FDA-Public Use
  Company Number: US-TELIGENT, INC-IGIL20180640

PATIENT
  Age: 83 Year
  Sex: Female

DRUGS (1)
  1. TRIAMCINOLONE ACETONIDE. [Suspect]
     Active Substance: TRIAMCINOLONE ACETONIDE
     Indication: RASH
     Dosage: UNKNOWN
     Route: 061
     Dates: start: 20181101, end: 20181104

REACTIONS (8)
  - Skin disorder [Not Recovered/Not Resolved]
  - Drug ineffective [Not Recovered/Not Resolved]
  - Condition aggravated [Not Recovered/Not Resolved]
  - Erythema [Not Recovered/Not Resolved]
  - Feeling hot [Not Recovered/Not Resolved]
  - Pruritus [Not Recovered/Not Resolved]
  - Skin exfoliation [Not Recovered/Not Resolved]
  - Skin wrinkling [Not Recovered/Not Resolved]

NARRATIVE: CASE EVENT DATE: 20181101
